FAERS Safety Report 25200964 (Version 1)
Quarter: 2025Q2

REPORT INFORMATION
  Report Type: Spontaneous
  Country: US (occurrence: US)
  Receive Date: 20250415
  Receipt Date: 20250415
  Transmission Date: 20250716
  Serious: No
  Sender: PIRAMAL
  Company Number: US-PCCINC-2025-PPL-000219

PATIENT

DRUGS (1)
  1. GABLOFEN [Suspect]
     Active Substance: BACLOFEN
     Indication: Muscle spasticity
     Route: 037

REACTIONS (3)
  - Allodynia [Recovered/Resolved]
  - Muscle spasticity [Recovered/Resolved]
  - Drug ineffective [Recovered/Resolved]
